FAERS Safety Report 21490868 (Version 1)
Quarter: 2022Q4

REPORT INFORMATION
  Report Type: Spontaneous
  Country: DE (occurrence: DE)
  Receive Date: 20221021
  Receipt Date: 20221021
  Transmission Date: 20230113
  Serious: Yes (Other)
  Sender: FDA-Public Use
  Company Number: DE-ALKEM LABORATORIES LIMITED-DE-ALKEM-2022-10679

PATIENT
  Sex: Female

DRUGS (11)
  1. FINGOLIMOD [Suspect]
     Active Substance: FINGOLIMOD
     Indication: Multiple sclerosis
     Dosage: 0.5 MILLIGRAM, QD (EVERY 1 DAY) (CAPSULE, HARD)
     Route: 048
     Dates: start: 20171023
  2. ACYCLOVIR [Concomitant]
     Active Substance: ACYCLOVIR
     Indication: Oral herpes
     Dosage: UNK
     Route: 065
     Dates: start: 20180627
  3. ACYCLOVIR [Concomitant]
     Active Substance: ACYCLOVIR
     Dosage: 200 MILLIGRAM, QD (EVERY 1 DAY)
     Route: 065
     Dates: start: 20180711, end: 20180715
  4. ACYCLOVIR [Concomitant]
     Active Substance: ACYCLOVIR
     Dosage: 200 MILLIGRAM
     Route: 065
     Dates: start: 20181002
  5. AMOXICILLIN\CLAVULANATE POTASSIUM [Concomitant]
     Active Substance: AMOXICILLIN\CLAVULANATE POTASSIUM
     Indication: Tonsillitis
     Dosage: 875 MILLIGRAM
     Route: 065
     Dates: start: 20171009, end: 20171013
  6. AMOXICILLIN\CLAVULANATE POTASSIUM [Concomitant]
     Active Substance: AMOXICILLIN\CLAVULANATE POTASSIUM
     Indication: Sinusitis
     Dosage: 875 MILLIGRAM
     Route: 065
     Dates: start: 20171108, end: 20171117
  7. AMOXICILLIN\CLAVULANATE POTASSIUM [Concomitant]
     Active Substance: AMOXICILLIN\CLAVULANATE POTASSIUM
     Dosage: 2 DOSAGE FORM, QD (EVERY 1 DAY)
     Route: 065
     Dates: start: 20180329, end: 20180402
  8. CEFIXIME [Concomitant]
     Active Substance: CEFIXIME
     Indication: Sinusitis
     Dosage: 400 MILLIGRAM
     Route: 065
     Dates: start: 20180319, end: 20180328
  9. CHOLECALCIFEROL [Concomitant]
     Active Substance: CHOLECALCIFEROL
     Indication: Vitamin D deficiency
     Dosage: 2000 IU INTERNATIONAL UNIT(S)
     Route: 065
     Dates: start: 20160101
  10. AZELAIC ACID [Concomitant]
     Active Substance: AZELAIC ACID
     Indication: Acne
     Dosage: UNK
     Route: 065
     Dates: start: 20171013
  11. VERRUCID [Concomitant]
     Indication: Skin papilloma
     Dosage: UNK
     Route: 065
     Dates: start: 20171013

REACTIONS (1)
  - Leukopenia [Not Recovered/Not Resolved]

NARRATIVE: CASE EVENT DATE: 20190806
